FAERS Safety Report 23601120 (Version 2)
Quarter: 2024Q1

REPORT INFORMATION
  Report Type: Spontaneous
  Country: US (occurrence: US)
  Receive Date: 20240306
  Receipt Date: 20240308
  Transmission Date: 20240410
  Serious: Yes (Life-Threatening, Other)
  Sender: FDA-Public Use
  Company Number: US-PFIZER INC-PV202400030961

PATIENT
  Age: 68 Year
  Sex: Male
  Weight: 83.5 kg

DRUGS (4)
  1. BRAFTOVI [Suspect]
     Active Substance: ENCORAFENIB
     Indication: Non-small cell lung cancer stage IV
     Dosage: 6 TABLETS QD (ONCE A DAY) X28 DAYS
  2. BRAFTOVI [Suspect]
     Active Substance: ENCORAFENIB
     Indication: Chemotherapy
  3. MEKTOVI [Suspect]
     Active Substance: BINIMETINIB
     Indication: Non-small cell lung cancer stage IV
     Dosage: 3 TABS BID (TWICE A DAY) X28 DAYS
  4. MEKTOVI [Suspect]
     Active Substance: BINIMETINIB
     Indication: Chemotherapy

REACTIONS (6)
  - Myocardial injury [Unknown]
  - Pleural effusion [Unknown]
  - Hypoxia [Unknown]
  - Cough [Unknown]
  - Dyspnoea [Unknown]
  - Weight decreased [Unknown]
